FAERS Safety Report 19840570 (Version 1)
Quarter: 2021Q3

REPORT INFORMATION
  Report Type: Spontaneous
  Country: IR (occurrence: IR)
  Receive Date: 20210916
  Receipt Date: 20210916
  Transmission Date: 20211014
  Serious: Yes (Hospitalization)
  Sender: FDA-Public Use
  Company Number: IR-UNICHEM PHARMACEUTICALS (USA) INC-UCM202109-000837

PATIENT
  Age: 26 Year
  Sex: Male

DRUGS (1)
  1. LAMOTRIGINE. [Suspect]
     Active Substance: LAMOTRIGINE
     Indication: OVERDOSE
     Dosage: OVERDOSE 1 GRAM (10 TABLETS OF 100 MG)

REACTIONS (7)
  - Mydriasis [Recovered/Resolved]
  - Intentional overdose [Unknown]
  - Coma [Recovered/Resolved]
  - Heart rate decreased [Recovered/Resolved]
  - Accelerated idioventricular rhythm [Recovered/Resolved]
  - Suicide attempt [Unknown]
  - Blood pressure decreased [Recovered/Resolved]
